FAERS Safety Report 4922118-7 (Version None)
Quarter: 2006Q1

REPORT INFORMATION
  Report Type: 
  Country: None (occurrence: None)
  Receive Date: 20060222
  Receipt Date: 20060222
  Transmission Date: 20060701
  Serious: Yes (Other)
  Sender: FDA-Public Use
  Company Number: None

PATIENT
  Age: 50 Year
  Sex: Male

DRUGS (2)
  1. OXYCODONE ER 40 MG DAVA [Suspect]
     Indication: PAIN
     Dosage: 1 PO BID
     Route: 048
     Dates: start: 20050208
  2. OXYCODONE ER 40 MG DAVA [Suspect]
     Indication: PAIN
     Dosage: 1 PO BID
     Route: 048
     Dates: start: 20050214

REACTIONS (3)
  - DYSPNOEA [None]
  - PHARMACEUTICAL PRODUCT COMPLAINT [None]
  - PRURITUS [None]
